FAERS Safety Report 7912714-7 (Version None)
Quarter: 2011Q4

REPORT INFORMATION
  Report Type: 
  Country: None (occurrence: None)
  Receive Date: 20111114
  Receipt Date: 20111109
  Transmission Date: 20120403
  Serious: Yes (Other)
  Sender: FDA-Public Use
  Company Number: US-PFIZER INC-2011223126

PATIENT
  Sex: Male

DRUGS (2)
  1. BUPROPION [Concomitant]
     Indication: DEPRESSION
     Dosage: UNK
     Dates: start: 20030101, end: 20100101
  2. CHANTIX [Suspect]
     Indication: SMOKING CESSATION THERAPY
     Dosage: 1 MG
     Dates: start: 20070501, end: 20091101

REACTIONS (5)
  - LOSS OF CONSCIOUSNESS [None]
  - AMNESIA [None]
  - VISUAL ACUITY REDUCED [None]
  - HEAD INJURY [None]
  - HEADACHE [None]
